FAERS Safety Report 24825567 (Version 4)
Quarter: 2025Q1

REPORT INFORMATION
  Report Type: Spontaneous
  Country: IN (occurrence: IN)
  Receive Date: 20250109
  Receipt Date: 20250304
  Transmission Date: 20250409
  Serious: Yes (Hospitalization)
  Sender: PFIZER
  Company Number: IN-PFIZER INC-PV202500002831

PATIENT
  Age: 23 Year
  Sex: Female
  Weight: 64 kg

DRUGS (10)
  1. ABROCITINIB [Suspect]
     Active Substance: ABROCITINIB
     Indication: Dermatitis atopic
     Dosage: 100 MG, 1X/DAY
     Dates: start: 20240911
  2. ABROCITINIB [Suspect]
     Active Substance: ABROCITINIB
     Dosage: 100 MG, 1X/DAY
     Dates: start: 20241007
  3. CETAPHIL [ALOE VERA;PANTHENOL] [Concomitant]
  4. CYCLOSPORINE [Concomitant]
     Active Substance: CYCLOSPORINE
  5. LEVOCETIRIZINE DIHYDROCHLORIDE/MONTELUKAST SODIUM [Concomitant]
  6. PROTINEX [AMINO ACIDS NOS] [Concomitant]
  7. ULTRACET [Concomitant]
     Active Substance: ACETAMINOPHEN\TRAMADOL HYDROCHLORIDE
  8. NUROKIND OD [Concomitant]
  9. SENSIVAL [Concomitant]
  10. BETAMETHASONE VALERATE\FUSIDIC ACID [Concomitant]
     Active Substance: BETAMETHASONE VALERATE\FUSIDIC ACID

REACTIONS (6)
  - Infection [Recovered/Resolved]
  - Rash [Recovered/Resolved]
  - Erythema [Recovered/Resolved]
  - Pruritus [Recovered/Resolved]
  - Dry skin [Recovered/Resolved]
  - Condition aggravated [Recovered/Resolved]

NARRATIVE: CASE EVENT DATE: 20241019
